FAERS Safety Report 9713841 (Version 1)
Quarter: 2013Q4

REPORT INFORMATION
  Report Type: Spontaneous
  Country: US (occurrence: US)
  Receive Date: 20131126
  Receipt Date: 20131126
  Transmission Date: 20140711
  Serious: Yes (Other)
  Sender: FDA-Public Use
  Company Number: US-GLAXOSMITHKLINE-A1050619A

PATIENT
  Age: 86 Year
  Sex: Female

DRUGS (9)
  1. ADVAIR [Suspect]
     Indication: CHRONIC OBSTRUCTIVE PULMONARY DISEASE
     Dosage: 1PUFF TWICE PER DAY
     Route: 055
  2. SPIRIVA [Concomitant]
  3. LASIX [Concomitant]
  4. OMEPRAZOLE [Concomitant]
  5. ALBUTEROL SULFATE [Concomitant]
  6. PAROXETINE [Concomitant]
  7. BROMFENAC SODIUM [Concomitant]
  8. LUMIGAN [Concomitant]
  9. MURO EYE DROPS [Concomitant]

REACTIONS (8)
  - Cataract operation [Not Recovered/Not Resolved]
  - Optic ischaemic neuropathy [Not Recovered/Not Resolved]
  - Blindness unilateral [Recovering/Resolving]
  - Eye complication associated with device [Not Recovered/Not Resolved]
  - Cataract [Not Recovered/Not Resolved]
  - Eye disorder [Not Recovered/Not Resolved]
  - Vision blurred [Not Recovered/Not Resolved]
  - Vitreous floaters [Not Recovered/Not Resolved]
